FAERS Safety Report 14893832 (Version 1)
Quarter: 2018Q2

REPORT INFORMATION
  Report Type: Spontaneous
  Country: NO (occurrence: NO)
  Receive Date: 20180514
  Receipt Date: 20180514
  Transmission Date: 20180711
  Serious: Yes (Hospitalization)
  Sender: FDA-Public Use
  Company Number: NO-ANIPHARMA-2018-NO-000008

PATIENT
  Sex: Male

DRUGS (1)
  1. CASODEX [Suspect]
     Active Substance: BICALUTAMIDE
     Dosage: 150 MG
     Route: 048
     Dates: start: 2015

REACTIONS (3)
  - Anaemia [Unknown]
  - Renal failure [Unknown]
  - Iron deficiency [Unknown]
